FAERS Safety Report 26052392 (Version 1)
Quarter: 2025Q4

REPORT INFORMATION
  Report Type: Report from Study
  Country: US (occurrence: US)
  Receive Date: 20251117
  Receipt Date: 20251117
  Transmission Date: 20260119
  Serious: No
  Sender: ABBVIE
  Company Number: US-ALLERGAN-2303015US

PATIENT
  Sex: Female

DRUGS (1)
  1. QULIPTA [Suspect]
     Active Substance: ATOGEPANT
     Indication: Product used for unknown indication
     Route: 048
     Dates: start: 20221228

REACTIONS (10)
  - Lyme disease [Not Recovered/Not Resolved]
  - Infection [Unknown]
  - Fungal infection [Unknown]
  - Pain [Unknown]
  - Gastrointestinal disorder [Unknown]
  - Palpitations [Unknown]
  - Constipation [Unknown]
  - Chronic fatigue syndrome [Not Recovered/Not Resolved]
  - Migraine [Recovering/Resolving]
  - Gait disturbance [Not Recovered/Not Resolved]
